FAERS Safety Report 9767587 (Version 3)
Quarter: 2015Q3

REPORT INFORMATION
  Report Type: Spontaneous
  Country: US (occurrence: US)
  Receive Date: 20131217
  Receipt Date: 20150722
  Transmission Date: 20151125
  Serious: No
  Sender: FDA-Public Use
  Company Number: US-GILEAD-2010-0027798

PATIENT
  Age: 39 Year
  Sex: Male
  Weight: 58.97 kg

DRUGS (7)
  1. MARINOL [Concomitant]
     Active Substance: DRONABINOL
  2. ATRIPLA [Suspect]
     Active Substance: EFAVIRENZ\EMTRICITABINE\TENOFOVIR DISOPROXIL FUMARATE
     Indication: HIV INFECTION
     Route: 048
     Dates: start: 200904, end: 200906
  3. ATRIPLA [Suspect]
     Active Substance: EFAVIRENZ\EMTRICITABINE\TENOFOVIR DISOPROXIL FUMARATE
     Route: 048
     Dates: start: 200906
  4. PREDNISONE. [Concomitant]
     Active Substance: PREDNISONE
  5. OXANDARONE [Concomitant]
  6. XANAX [Concomitant]
     Active Substance: ALPRAZOLAM
  7. TESTOSTERONE. [Concomitant]
     Active Substance: TESTOSTERONE

REACTIONS (1)
  - Polycythaemia [Recovering/Resolving]
